FAERS Safety Report 7741552-3 (Version None)
Quarter: 2011Q3

REPORT INFORMATION
  Report Type: 
  Country: None (occurrence: None)
  Receive Date: 20110909
  Receipt Date: 20110822
  Transmission Date: 20111222
  Serious: Yes (Other)
  Sender: FDA-Public Use
  Company Number: GR-GENENTECH-324112

PATIENT
  Age: 72 Year
  Sex: Female

DRUGS (1)
  1. LUCENTIS [Suspect]
     Indication: MACULAR DEGENERATION
     Dosage: UNK UNK, UNK
     Route: 031

REACTIONS (3)
  - CHOROIDAL HAEMORRHAGE [None]
  - SUDDEN VISUAL LOSS [None]
  - VISUAL ACUITY REDUCED [None]
